FAERS Safety Report 6849818-6 (Version None)
Quarter: 2010Q3

REPORT INFORMATION
  Report Type: 
  Country: None (occurrence: None)
  Receive Date: 20100716
  Receipt Date: 20090923
  Transmission Date: 20110219
  Serious: No
  Sender: FDA-Public Use
  Company Number: US-PFIZER INC-2007084319

PATIENT
  Sex: Female
  Weight: 69 kg

DRUGS (4)
  1. CHANTIX [Suspect]
     Indication: SMOKING CESSATION THERAPY
     Dosage: UNK
     Dates: start: 20070901
  2. SYNTHROID [Concomitant]
     Indication: HYPOTHYROIDISM
  3. CYTOMEL [Concomitant]
     Indication: HYPOTHYROIDISM
  4. ESTROVEN [Concomitant]

REACTIONS (8)
  - ANXIETY [None]
  - CYSTITIS [None]
  - FATIGUE [None]
  - NAUSEA [None]
  - NERVOUSNESS [None]
  - PAROSMIA [None]
  - PERSONALITY DISORDER [None]
  - SOMNOLENCE [None]
